FAERS Safety Report 9718236 (Version 2)
Quarter: 2013Q4

REPORT INFORMATION
  Report Type: Spontaneous
  Country: US (occurrence: US)
  Receive Date: 20131127
  Receipt Date: 20131206
  Transmission Date: 20140711
  Serious: Yes (Other)
  Sender: FDA-Public Use
  Company Number: US-009507513-1311USA011119

PATIENT
  Sex: Female

DRUGS (5)
  1. MK-0000 (111) [Suspect]
     Dosage: UNK
  2. FORADIL [Suspect]
     Dosage: 1 DF (1 CAPSULE ), BID, 1 STANDAR DOSE OF 18
     Route: 055
  3. ALBUTEROL SULFATE [Concomitant]
     Dosage: NEBULIZER TREATMENTS
  4. SPIRIVA [Concomitant]
  5. COMBIVENT [Concomitant]

REACTIONS (5)
  - Heart valve operation [Unknown]
  - Heart valve incompetence [Unknown]
  - Dyspnoea [Unknown]
  - Drug dose omission [Unknown]
  - Product quality issue [Unknown]
